FAERS Safety Report 10311801 (Version 1)
Quarter: 2014Q3

REPORT INFORMATION
  Report Type: Report from Study
  Country: CN (occurrence: CN)
  Receive Date: 20140717
  Receipt Date: 20140717
  Transmission Date: 20150326
  Serious: Yes (Other)
  Sender: FDA-Public Use
  Company Number: CN-BAXTER-2014BAX040698

PATIENT
  Sex: Female

DRUGS (10)
  1. CISATRACURIUM [Suspect]
     Active Substance: CISATRACURIUM
     Indication: LAPAROSCOPIC SURGERY
     Route: 065
  2. SODIUM LACTATE RINGER^S INJECTION 500ML [Suspect]
     Active Substance: RINGER^S SOLUTION, LACTATED
     Indication: PRODUCT USED FOR UNKNOWN INDICATION
     Dosage: 10 ML (KG.H)
     Route: 042
  3. SEVOFLURANE. [Suspect]
     Active Substance: SEVOFLURANE
     Dosage: 0.3 UG/KG
     Route: 065
  4. HYDROXYETHYL STARCH SODIUM CHLORIDE [Suspect]
     Active Substance: HETASTARCH\SODIUM CHLORIDE
     Indication: LAPAROSCOPIC SURGERY
     Dosage: 6 ML/KG
     Route: 065
  5. DEXMEDETOMIDINE [Suspect]
     Active Substance: DEXMEDETOMIDINE
     Indication: LAPAROSCOPIC SURGERY
     Dosage: 0.8 UG/KG
     Route: 042
  6. SEVOFLURANE. [Suspect]
     Active Substance: SEVOFLURANE
     Indication: LAPAROSCOPIC SURGERY
     Route: 055
  7. REMIFENTANIL [Suspect]
     Active Substance: REMIFENTANIL
     Indication: LAPAROSCOPIC SURGERY
     Route: 065
  8. ETOMIDATE. [Suspect]
     Active Substance: ETOMIDATE
     Indication: LAPAROSCOPIC SURGERY
     Route: 065
  9. SUFENTANIL [Suspect]
     Active Substance: SUFENTANIL
     Indication: LAPAROSCOPIC SURGERY
     Dosage: 0.3 UG/KG
     Route: 065
  10. REMIFENTANIL [Suspect]
     Active Substance: REMIFENTANIL
     Dosage: 0.1 - 0.15 UG (KG.MIN)
     Route: 065

REACTIONS (1)
  - Bradycardia [Recovered/Resolved]
